FAERS Safety Report 12364739 (Version 1)
Quarter: 2016Q2

REPORT INFORMATION
  Report Type: Report from Study
  Country: GB (occurrence: GB)
  Receive Date: 20160512
  Receipt Date: 20160512
  Transmission Date: 20160815
  Serious: Yes (Other)
  Sender: FDA-Public Use
  Company Number: GB-ABBVIE-16P-167-1626754-00

PATIENT
  Age: 79 Year
  Sex: Male

DRUGS (1)
  1. DUODOPA [Suspect]
     Active Substance: CARBIDOPA\LEVODOPA
     Indication: PARKINSON^S DISEASE
     Dosage: 100 ML CASSETTE
     Route: 050

REACTIONS (7)
  - Head injury [Recovered/Resolved]
  - Device issue [Unknown]
  - Parkinson^s disease [Not Recovered/Not Resolved]
  - Limb injury [Unknown]
  - Fall [Recovered/Resolved]
  - Incorrect route of drug administration [Unknown]
  - Device infusion issue [Unknown]

NARRATIVE: CASE EVENT DATE: 20160428
